FAERS Safety Report 7974083-6 (Version None)
Quarter: 2011Q4

REPORT INFORMATION
  Report Type: 
  Country: None (occurrence: None)
  Receive Date: 20111213
  Receipt Date: 20111205
  Transmission Date: 20120403
  Serious: Yes (Other)
  Sender: FDA-Public Use
  Company Number: US-B.I. PHARMACEUTICALS,INC./RIDGEFIELD-2011-BP-12061BP

PATIENT
  Sex: Male

DRUGS (15)
  1. PHENAZOPYRIDINE HCL TAB [Suspect]
     Dates: start: 20110421, end: 20110425
  2. PLAVIX [Suspect]
     Indication: PROPHYLAXIS
     Dosage: 75 MG
     Route: 048
     Dates: start: 20111202
  3. BETAPACE [Concomitant]
     Indication: ATRIAL FIBRILLATION
  4. PRADAXA [Suspect]
     Dosage: 300 MG
     Route: 048
     Dates: start: 20110423, end: 20110427
  5. CIPROFLOXACIN [Concomitant]
     Dates: start: 20110421, end: 20110426
  6. RAMIPRIL [Concomitant]
     Indication: HYPERTENSION
  7. FUROSEMIDE [Concomitant]
     Indication: JOINT SWELLING
  8. PRADAXA [Suspect]
     Indication: ATRIAL FIBRILLATION
     Dosage: 300 MG
     Route: 048
     Dates: start: 20110308, end: 20110418
  9. PRADAXA [Suspect]
     Dosage: 300 MG
     Route: 048
     Dates: start: 20111202
  10. ASPIRIN [Suspect]
     Indication: PROPHYLAXIS
     Dates: end: 20110427
  11. POTASSIUM CHLORIDE [Concomitant]
     Indication: MINERAL SUPPLEMENTATION
  12. CARDIZEM [Concomitant]
     Indication: ATRIAL FIBRILLATION
  13. ASPIRIN [Suspect]
     Dosage: 81 MG
     Route: 048
     Dates: start: 20111202
  14. PLAVIX [Suspect]
     Indication: CARDIAC DISORDER
     Dates: start: 20081101, end: 20110427
  15. SIMVASTATIN [Concomitant]
     Indication: BLOOD CHOLESTEROL INCREASED

REACTIONS (3)
  - BLOOD URINE PRESENT [None]
  - GINGIVAL BLEEDING [None]
  - HAEMORRHAGE [None]
